FAERS Safety Report 11057692 (Version 1)
Quarter: 2015Q2

REPORT INFORMATION
  Report Type: Spontaneous
  Country: IN (occurrence: IN)
  Receive Date: 20150423
  Receipt Date: 20150423
  Transmission Date: 20150821
  Serious: Yes (Death, Hospitalization)
  Sender: FDA-Public Use
  Company Number: CHPA2015IN005260

PATIENT
  Age: 2 Year
  Sex: Female

DRUGS (1)
  1. FERROUS SULFATE [Suspect]
     Active Substance: FERROUS SULFATE\FERROUS SULFATE, DRIED
     Indication: PRODUCT USED FOR UNKNOWN INDICATION
     Dosage: 1 DF, ONCE/SINGLE
     Route: 048

REACTIONS (12)
  - Haematemesis [Unknown]
  - Somnolence [Unknown]
  - Vomiting [Unknown]
  - Gastrointestinal haemorrhage [Unknown]
  - Anaemia [Unknown]
  - Acute left ventricular failure [Fatal]
  - Faeces discoloured [Unknown]
  - Melaena [Unknown]
  - Accidental exposure to product by child [Unknown]
  - Multi-organ failure [Fatal]
  - Shock [Unknown]
  - Eye haemorrhage [Unknown]
